FAERS Safety Report 16112262 (Version 1)
Quarter: 2019Q1

REPORT INFORMATION
  Report Type: Spontaneous
  Country: US (occurrence: US)
  Receive Date: 20190325
  Receipt Date: 20190325
  Transmission Date: 20190418
  Serious: Yes (Hospitalization, Disabling)
  Sender: FDA-Public Use
  Company Number: US-JNJFOC-20190329329

PATIENT
  Age: 48 Year
  Sex: Male

DRUGS (4)
  1. PLAVIX [Suspect]
     Active Substance: CLOPIDOGREL BISULFATE
     Indication: STENT PLACEMENT
     Route: 065
  2. INVOKANA [Suspect]
     Active Substance: CANAGLIFLOZIN
     Indication: TYPE 2 DIABETES MELLITUS
     Route: 048
  3. COUMADIN [Suspect]
     Active Substance: WARFARIN SODIUM
     Indication: STENT PLACEMENT
     Route: 065
  4. ASPIRIN. [Suspect]
     Active Substance: ASPIRIN
     Indication: STENT PLACEMENT
     Route: 065

REACTIONS (6)
  - Leg amputation [Unknown]
  - Dry gangrene [Recovering/Resolving]
  - Limb amputation [Unknown]
  - Peripheral ischaemia [Recovering/Resolving]
  - Vascular stent thrombosis [Recovering/Resolving]
  - Wound necrosis [Recovering/Resolving]

NARRATIVE: CASE EVENT DATE: 20160218
